FAERS Safety Report 21962819 (Version 2)
Quarter: 2023Q1

REPORT INFORMATION
  Report Type: Report from Study
  Country: GB (occurrence: GB)
  Receive Date: 20230207
  Receipt Date: 20230302
  Transmission Date: 20230418
  Serious: Yes (Hospitalization)
  Sender: FDA-Public Use
  Company Number: GB-Galen Limited-AE-2023-0076

PATIENT
  Sex: Male
  Weight: 83 kg

DRUGS (39)
  1. AZACITIDINE [Suspect]
     Active Substance: AZACITIDINE
     Indication: Acute myeloid leukaemia
     Dosage: 150 MILLIGRAM
     Route: 058
     Dates: start: 20221115, end: 20221115
  2. AZACITIDINE [Suspect]
     Active Substance: AZACITIDINE
     Dosage: 150 MILLIGRAM, REGIMEN 2
     Route: 058
     Dates: start: 20221116, end: 20221116
  3. AZACITIDINE [Suspect]
     Active Substance: AZACITIDINE
     Dosage: 150 MILLIGRAM, REGIMEN 3
     Route: 058
     Dates: start: 20221117, end: 20221117
  4. AZACITIDINE [Suspect]
     Active Substance: AZACITIDINE
     Dosage: 150 MILLIGRAM, REGIMEN 4
     Route: 058
     Dates: start: 20221118, end: 20221118
  5. AZACITIDINE [Suspect]
     Active Substance: AZACITIDINE
     Dosage: 150 MILLIGRAM, REGIMEN 5
     Route: 058
     Dates: start: 20221119, end: 20221119
  6. AZACITIDINE [Suspect]
     Active Substance: AZACITIDINE
     Dosage: 150 MILLIGRAM, REGIMEN 6
     Route: 058
     Dates: start: 20221122, end: 20221122
  7. AZACITIDINE [Suspect]
     Active Substance: AZACITIDINE
     Dosage: 150 MILLIGRAM, REGIMEN 7
     Route: 058
     Dates: start: 20221123, end: 20221123
  8. AZACITIDINE [Suspect]
     Active Substance: AZACITIDINE
     Dosage: 150 MILLIGRAM, REGIMEN 8
     Route: 058
     Dates: start: 20221220, end: 20221220
  9. AZACITIDINE [Suspect]
     Active Substance: AZACITIDINE
     Dosage: 150 MILLIGRAM, REGIMEN 9
     Route: 058
     Dates: start: 20221221, end: 20221221
  10. AZACITIDINE [Suspect]
     Active Substance: AZACITIDINE
     Dosage: 150 MILLIGRAM, REGIMEN 10
     Route: 058
     Dates: start: 20221222, end: 20221222
  11. AZACITIDINE [Suspect]
     Active Substance: AZACITIDINE
     Dosage: 150 MILLIGRAM, REGIMEN11
     Route: 058
     Dates: start: 20221223, end: 20221223
  12. AZACITIDINE [Suspect]
     Active Substance: AZACITIDINE
     Dosage: 150 MILLIGRAM, REGIMEN12
     Route: 058
     Dates: start: 20221224, end: 20221224
  13. AZACITIDINE [Suspect]
     Active Substance: AZACITIDINE
     Dosage: 150 MILLIGRAM, REGIMEN13
     Route: 058
     Dates: start: 20221227, end: 20221227
  14. AZACITIDINE [Suspect]
     Active Substance: AZACITIDINE
     Dosage: 150 MILLIGRAM, REGIMEN 14
     Route: 058
     Dates: start: 20221228, end: 20221228
  15. AZACITIDINE [Suspect]
     Active Substance: AZACITIDINE
     Dosage: UNK
     Route: 065
     Dates: start: 20230131
  16. AZACITIDINE [Suspect]
     Active Substance: AZACITIDINE
     Dosage: UNK
     Route: 065
     Dates: start: 20230201
  17. POLYETHYLENE GLYCOL 3350\POTASSIUM CHLORIDE\SODIUM BICARBONATE\SODIUM [Suspect]
     Active Substance: POLYETHYLENE GLYCOL 3350\POTASSIUM CHLORIDE\SODIUM BICARBONATE\SODIUM CHLORIDE
     Indication: Constipation
     Dosage: UNK PRN, 1-2 SACHETS AS REQUIRED - REGIMEN 1
     Route: 048
     Dates: start: 20221118, end: 20230106
  18. POLYETHYLENE GLYCOL 3350\POTASSIUM CHLORIDE\SODIUM BICARBONATE\SODIUM [Suspect]
     Active Substance: POLYETHYLENE GLYCOL 3350\POTASSIUM CHLORIDE\SODIUM BICARBONATE\SODIUM CHLORIDE
     Indication: Supplementation therapy
     Dosage: UNK, STARTED ON REGULAR LAXIDO
     Route: 048
     Dates: start: 20230107, end: 20230107
  19. POLYETHYLENE GLYCOL 3350\POTASSIUM CHLORIDE\SODIUM BICARBONATE\SODIUM [Suspect]
     Active Substance: POLYETHYLENE GLYCOL 3350\POTASSIUM CHLORIDE\SODIUM BICARBONATE\SODIUM CHLORIDE
     Dosage: UNK TID, INCREASED TO TWO SACHETS TDS
     Route: 048
     Dates: start: 20230108
  20. SENNA [Suspect]
     Active Substance: SENNA LEAF\SENNOSIDES\SENNOSIDES A AND B
     Indication: Constipation
     Dosage: 7.5 MILLIGRAM, REGIMEN 1
     Route: 065
     Dates: start: 20230105
  21. SENNA [Suspect]
     Active Substance: SENNA LEAF\SENNOSIDES\SENNOSIDES A AND B
     Dosage: 15 MILLIGRAM, BID, DOUBLED TO 15MG TWICE DAILY
     Route: 065
     Dates: start: 20230107
  22. VENETOCLAX [Suspect]
     Active Substance: VENETOCLAX
     Indication: Acute myeloid leukaemia
     Dosage: 10 MILLIGRAM, QD, 10MG QD
     Route: 048
     Dates: start: 20221115, end: 20221115
  23. VENETOCLAX [Suspect]
     Active Substance: VENETOCLAX
     Dosage: 20 MILLIGRAM, QD, 20MG QD - REGIMEN 2
     Route: 048
     Dates: start: 20221116, end: 20221116
  24. VENETOCLAX [Suspect]
     Active Substance: VENETOCLAX
     Dosage: UNK, UNK QD - REGIMEN 3
     Route: 048
     Dates: start: 20221117, end: 20221117
  25. VENETOCLAX [Suspect]
     Active Substance: VENETOCLAX
     Dosage: 10 MILLIGRAM, QD, 10MG QD - REGIMEN 4
     Route: 048
     Dates: start: 20221118, end: 20221118
  26. VENETOCLAX [Suspect]
     Active Substance: VENETOCLAX
     Dosage: 20 MILLIGRAM, QD, 20MG QD - REGIMEN 5
     Route: 048
     Dates: start: 20221119, end: 20221119
  27. VENETOCLAX [Suspect]
     Active Substance: VENETOCLAX
     Dosage: 50 MILLIGRAM, QD, 50MG QD - REGIMEN 6
     Route: 048
     Dates: start: 20221120, end: 20221122
  28. VENETOCLAX [Suspect]
     Active Substance: VENETOCLAX
     Dosage: 70 MILLIGRAM, QD, 70MG QD - REGIMEN 7
     Route: 048
     Dates: start: 20221123, end: 20221213
  29. VENETOCLAX [Suspect]
     Active Substance: VENETOCLAX
     Dosage: UNK, UNK QD - REGIMEN 8
     Route: 048
     Dates: start: 20221214, end: 20221219
  30. VENETOCLAX [Suspect]
     Active Substance: VENETOCLAX
     Dosage: 70 MILLIGRAM, QD, 70MG QD - REGIMEN 9
     Route: 048
     Dates: start: 20221220, end: 20221220
  31. ALLOPURINOL [Concomitant]
     Active Substance: ALLOPURINOL
     Dosage: UNK
     Route: 065
     Dates: start: 20221115
  32. CIPROFLOXACIN [Concomitant]
     Active Substance: CIPROFLOXACIN
     Dosage: UNK
     Route: 065
     Dates: start: 20221123
  33. CHLORHEXIDINE HYDROCHLORIDE\NEOMYCIN SULFATE [Concomitant]
     Active Substance: CHLORHEXIDINE HYDROCHLORIDE\NEOMYCIN SULFATE
     Dosage: UNK
     Route: 065
     Dates: start: 20221123
  34. SODIUM CHLORIDE [Concomitant]
     Active Substance: SODIUM CHLORIDE
     Dosage: UNK
     Route: 065
     Dates: start: 20221115
  35. OMEPRAZOLE [Concomitant]
     Active Substance: OMEPRAZOLE
     Dosage: UNK
     Route: 065
     Dates: start: 20221115
  36. ACETAMINOPHEN [Concomitant]
     Active Substance: ACETAMINOPHEN
     Dosage: UNK
     Route: 065
     Dates: start: 20221117
  37. POSACONAZOLE [Concomitant]
     Active Substance: POSACONAZOLE
     Dosage: UNK
     Route: 065
     Dates: start: 20221116
  38. PIPERACILLIN SODIUM\TAZOBACTAM SODIUM [Concomitant]
     Active Substance: PIPERACILLIN SODIUM\TAZOBACTAM SODIUM
     Dosage: 4.5 MILLIGRAM, QID; 4.5G QDS IV
     Route: 042
     Dates: start: 20221115
  39. POLYETHYLENE GLYCOL 3350\POTASSIUM CHLORIDE\SODIUM BICARBONATE\SODIUM [Concomitant]
     Active Substance: POLYETHYLENE GLYCOL 3350\POTASSIUM CHLORIDE\SODIUM BICARBONATE\SODIUM CHLORIDE
     Dosage: UNK
     Route: 048
     Dates: start: 20221118, end: 20230106

REACTIONS (2)
  - Constipation [Recovered/Resolved]
  - Product use issue [Unknown]

NARRATIVE: CASE EVENT DATE: 20230106
